FAERS Safety Report 5806188-X (Version None)
Quarter: 2008Q3

REPORT INFORMATION
  Report Type: 
  Country: None (occurrence: None)
  Receive Date: 20080710
  Receipt Date: 20080704
  Transmission Date: 20090109
  Serious: Yes (Other)
  Sender: FDA-Public Use
  Company Number: IN-AVENTIS-200816020GDDC

PATIENT
  Age: 65 Year
  Sex: Male
  Weight: 50 kg

DRUGS (2)
  1. LANTUS [Suspect]
     Route: 058
     Dates: start: 20070425
  2. GLIMEPIRIDE [Concomitant]
     Route: 048
     Dates: start: 20070425

REACTIONS (1)
  - CONVERSION DISORDER [None]
